FAERS Safety Report 25037717 (Version 1)
Quarter: 2025Q1

REPORT INFORMATION
  Report Type: Report from Study
  Country: US (occurrence: US)
  Receive Date: 20250304
  Receipt Date: 20250304
  Transmission Date: 20250408
  Serious: No
  Sender: SANDOZ
  Company Number: US-SANDOZ-SDZ2024US107763

PATIENT
  Age: 13 Year
  Sex: Male

DRUGS (2)
  1. OMNITROPE [Suspect]
     Active Substance: SOMATROPIN
     Indication: Product used for unknown indication
     Dosage: 10 MG, QD, 1.6MG DAILY
     Route: 030
     Dates: start: 20230817
  2. OMNITROPE [Suspect]
     Active Substance: SOMATROPIN
     Indication: Product used for unknown indication
     Dosage: 10 MG, QD, 1.6MG DAILY
     Route: 030
     Dates: start: 20230817

REACTIONS (2)
  - Drug ineffective [Unknown]
  - Device breakage [Unknown]

NARRATIVE: CASE EVENT DATE: 20240412
